FAERS Safety Report 23286086 (Version 2)
Quarter: 2023Q4

REPORT INFORMATION
  Report Type: Report from Study
  Country: US (occurrence: US)
  Receive Date: 20231212
  Receipt Date: 20231219
  Transmission Date: 20240110
  Serious: Yes (Hospitalization)
  Sender: FDA-Public Use
  Company Number: US-TAKEDA-2023TUS054976

PATIENT
  Sex: Male
  Weight: 88 kg

DRUGS (2)
  1. MARIBAVIR [Suspect]
     Active Substance: MARIBAVIR
     Indication: Cytomegalovirus infection
     Dosage: 200 MILLIGRAM, BID
     Route: 048
     Dates: start: 20230531, end: 20230718
  2. MARIBAVIR [Suspect]
     Active Substance: MARIBAVIR
     Indication: Myelodysplastic syndrome
     Dosage: 400 MILLIGRAM, BID
     Route: 048

REACTIONS (4)
  - Hospitalisation [Unknown]
  - Dysgeusia [Unknown]
  - Intentional product use issue [Unknown]
  - Product use complaint [Unknown]
